FAERS Safety Report 6905135-7 (Version None)
Quarter: 2010Q3

REPORT INFORMATION
  Report Type: 
  Country: None (occurrence: None)
  Receive Date: 20100804
  Receipt Date: 20091009
  Transmission Date: 20110219
  Serious: No
  Sender: FDA-Public Use
  Company Number: US-PFIZER INC-2009246223

PATIENT
  Sex: Male

DRUGS (4)
  1. LYRICA [Suspect]
     Dosage: UNK
  2. CYMBALTA [Concomitant]
  3. BENACORT [Concomitant]
  4. TRAMADOL [Concomitant]

REACTIONS (3)
  - DIZZINESS [None]
  - MALAISE [None]
  - MYALGIA [None]
